FAERS Safety Report 25241625 (Version 1)
Quarter: 2025Q2

REPORT INFORMATION
  Report Type: Spontaneous
  Country: US (occurrence: US)
  Receive Date: 20250426
  Receipt Date: 20250426
  Transmission Date: 20250716
  Serious: No
  Sender: MERCK SHARP & DOHME LLC
  Company Number: US-009507513-2277562

PATIENT
  Age: 56 Year
  Sex: Male

DRUGS (3)
  1. IVERMECTIN [Suspect]
     Active Substance: IVERMECTIN
     Indication: Strongyloidiasis
  2. PREDNISONE [Concomitant]
     Active Substance: PREDNISONE
  3. PREDNISONE [Concomitant]
     Active Substance: PREDNISONE

REACTIONS (1)
  - Inappropriate schedule of product administration [Unknown]
